FAERS Safety Report 5932899-1 (Version None)
Quarter: 2008Q4

REPORT INFORMATION
  Report Type: 
  Country: None (occurrence: None)
  Receive Date: 20081028
  Receipt Date: 20081021
  Transmission Date: 20090506
  Serious: Yes (Life-Threatening)
  Sender: FDA-Public Use
  Company Number: GB-AVENTIS-200820058GDDC

PATIENT
  Age: 61 Year
  Sex: Female

DRUGS (4)
  1. TAXOTERE [Suspect]
     Route: 042
     Dates: end: 20061101
  2. NEULASTA [Suspect]
     Dosage: DOSE: UNK
     Route: 042
  3. CYCLOPHOSPHAMIDE [Suspect]
     Dosage: DOSE: UNK
     Route: 042
     Dates: start: 20060601, end: 20060901
  4. FLUOROURACIL [Suspect]
     Dosage: DOSE: UNK
     Route: 042

REACTIONS (1)
  - PROGRESSIVE MULTIFOCAL LEUKOENCEPHALOPATHY [None]
